FAERS Safety Report 4573952-7 (Version None)
Quarter: 2005Q1

REPORT INFORMATION
  Report Type: 
  Country: None (occurrence: None)
  Receive Date: 20050204
  Receipt Date: 20050126
  Transmission Date: 20050727
  Serious: Yes (Hospitalization)
  Sender: FDA-Public Use
  Company Number: GXKR2005IT00509

PATIENT
  Age: 62 Year
  Sex: Female

DRUGS (4)
  1. RANITIDINE HCL [Suspect]
     Indication: GASTROINTESTINAL DISORDER
     Dosage: ORAL
     Route: 048
  2. INDAPAMIDE [Concomitant]
  3. HEPARIN [Concomitant]
  4. ERGOTAMINE                   (ERGOTAMINE) [Concomitant]

REACTIONS (6)
  - CAROTID ARTERY DISEASE [None]
  - EYE OEDEMA [None]
  - OPTIC NEUROPATHY [None]
  - PAPILLOEDEMA [None]
  - ULTRASOUND DOPPLER ABNORMAL [None]
  - VISUAL ACUITY REDUCED [None]
